FAERS Safety Report 5797082-1 (Version None)
Quarter: 2008Q3

REPORT INFORMATION
  Report Type: 
  Country: None (occurrence: None)
  Receive Date: 20080701
  Receipt Date: 20080630
  Transmission Date: 20090109
  Serious: Yes (Death)
  Sender: FDA-Public Use
  Company Number: US-ASTRAZENECA-2008UW13079

PATIENT
  Age: 26 Year
  Sex: Male

DRUGS (1)
  1. DIPRIVAN [Suspect]
     Indication: INTRACRANIAL PRESSURE INCREASED
     Route: 042
     Dates: start: 20050101

REACTIONS (3)
  - CARDIAC DISORDER [None]
  - PROPOFOL INFUSION SYNDROME [None]
  - RENAL FAILURE [None]
